FAERS Safety Report 24227640 (Version 1)
Quarter: 2024Q3

REPORT INFORMATION
  Report Type: Report from Study
  Country: US (occurrence: US)
  Receive Date: 20240820
  Receipt Date: 20240820
  Transmission Date: 20241017
  Serious: Yes (Other)
  Sender: NOVARTIS
  Company Number: US-002147023-NVSC2024US166681

PATIENT
  Sex: Female

DRUGS (1)
  1. KESIMPTA [Suspect]
     Active Substance: OFATUMUMAB
     Indication: Product used for unknown indication
     Dosage: 20 MG
     Route: 058

REACTIONS (7)
  - Seizure [Unknown]
  - Skin papilloma [Unknown]
  - Fatigue [Unknown]
  - Illness [Unknown]
  - Sleep disorder [Unknown]
  - Decreased immune responsiveness [Unknown]
  - COVID-19 [Unknown]
